FAERS Safety Report 14864090 (Version 2)
Quarter: 2018Q2

REPORT INFORMATION
  Report Type: Spontaneous
  Country: US (occurrence: US)
  Receive Date: 20180508
  Receipt Date: 20180524
  Transmission Date: 20180711
  Serious: Yes (Hospitalization, Other)
  Sender: FDA-Public Use
  Company Number: US-ASTRAZENECA-2018SE58884

PATIENT
  Age: 19696 Day
  Sex: Male
  Weight: 93.9 kg

DRUGS (2)
  1. BRILINTA [Suspect]
     Active Substance: TICAGRELOR
     Indication: CORONARY ARTERIAL STENT INSERTION
     Route: 048
     Dates: start: 20170902
  2. BRILINTA [Suspect]
     Active Substance: TICAGRELOR
     Indication: CORONARY ARTERIAL STENT INSERTION
     Route: 048

REACTIONS (10)
  - Dyspnoea exertional [Not Recovered/Not Resolved]
  - Heart injury [Recovered/Resolved with Sequelae]
  - Dyspepsia [Unknown]
  - Dyspnoea [Not Recovered/Not Resolved]
  - Wrong schedule [Recovered/Resolved]
  - Vascular occlusion [Unknown]
  - Cardiac arrest [Recovering/Resolving]
  - Myocardial infarction [Unknown]
  - Feeling abnormal [Recovering/Resolving]
  - Pain [Recovering/Resolving]

NARRATIVE: CASE EVENT DATE: 20171006
